FAERS Safety Report 17424935 (Version 2)
Quarter: 2020Q1

REPORT INFORMATION
  Report Type: Spontaneous
  Country: US (occurrence: US)
  Receive Date: 20200217
  Receipt Date: 20200302
  Transmission Date: 20200409
  Serious: No
  Sender: FDA-Public Use
  Company Number: US-SHIRE-US202005909

PATIENT
  Sex: Female

DRUGS (2)
  1. LIALDA [Suspect]
     Active Substance: MESALAMINE
     Indication: CROHN^S DISEASE
     Dosage: 3.6 GRAM, 1X/DAY:QD
     Route: 065
  2. LIALDA [Suspect]
     Active Substance: MESALAMINE
     Dosage: 1.2 GRAM, 3X/DAY:TID
     Route: 065

REACTIONS (3)
  - Therapeutic product effect incomplete [Unknown]
  - Product storage error [Unknown]
  - Product residue present [Unknown]
